FAERS Safety Report 19701392 (Version 1)
Quarter: 2021Q3

REPORT INFORMATION
  Report Type: Spontaneous
  Country: FR (occurrence: FR)
  Receive Date: 20210813
  Receipt Date: 20210813
  Transmission Date: 20211014
  Serious: Yes (Other)
  Sender: FDA-Public Use
  Company Number: FR-BAUSCH-BL-2021-026864

PATIENT
  Age: 73 Year
  Sex: Female

DRUGS (5)
  1. MELPHALAN. [Concomitant]
     Active Substance: MELPHALAN
     Indication: PLASMA CELL MYELOMA
     Dosage: DOES NOT REMEMBER
     Dates: start: 201807
  2. BISPHOSPHONATES [Concomitant]
     Active Substance: UNSPECIFIED INGREDIENT
     Indication: PLASMA CELL MYELOMA
     Dosage: FREQUENCY TIME: 1 MONTHS
     Route: 042
  3. CORTISONE [Suspect]
     Active Substance: CORTISONE
     Indication: PLASMA CELL MYELOMA
     Route: 042
     Dates: start: 201807
  4. VELCADE [Suspect]
     Active Substance: BORTEZOMIB
     Indication: PLASMA CELL MYELOMA
     Dosage: FREQUENCY TIME: 1 WEEKS
     Route: 042
     Dates: start: 201807
  5. DEXAMETHASONE. [Suspect]
     Active Substance: DEXAMETHASONE
     Indication: PLASMA CELL MYELOMA
     Dosage: FREQUENCY TIME: 2 WEEKS
     Route: 042
     Dates: start: 201807

REACTIONS (5)
  - Diarrhoea [Recovered/Resolved]
  - Plasma cell myeloma [Recovered/Resolved]
  - Agitation [Recovered/Resolved]
  - Insomnia [Recovered/Resolved]
  - Fatigue [Recovered/Resolved]

NARRATIVE: CASE EVENT DATE: 201807
